FAERS Safety Report 14912926 (Version 2)
Quarter: 2018Q2

REPORT INFORMATION
  Report Type: Spontaneous
  Country: US (occurrence: US)
  Receive Date: 20180518
  Receipt Date: 20180522
  Transmission Date: 20180711
  Serious: No
  Sender: FDA-Public Use
  Company Number: US-PFIZER INC-2018202435

PATIENT
  Age: 33 Year
  Sex: Female

DRUGS (4)
  1. SOMAVERT [Suspect]
     Active Substance: PEGVISOMANT
     Indication: ACROMEGALY
     Dosage: 15 MG, UNK
  2. SOMAVERT [Suspect]
     Active Substance: PEGVISOMANT
     Dosage: 25 MG, 1X/DAY, (SELF INJECTION, PRELOADED SYRINGE, SUBCUTANEOUS INJECTION, EVERY EVENING)
     Route: 058
     Dates: start: 201609
  3. SYNTHROID [Concomitant]
     Active Substance: LEVOTHYROXINE SODIUM
     Indication: THYROID DISORDER
     Dosage: 88 UG, DAILY
     Route: 048
     Dates: start: 201603
  4. SPRINTEC [Concomitant]
     Active Substance: ETHINYL ESTRADIOL\NORGESTIMATE
     Indication: CONTRACEPTION
     Dosage: 0.25 MG, 1X/DAY
     Route: 048

REACTIONS (2)
  - Alopecia [Unknown]
  - Insulin-like growth factor decreased [Recovered/Resolved]

NARRATIVE: CASE EVENT DATE: 2017
